FAERS Safety Report 10221021 (Version 1)
Quarter: 2014Q2

REPORT INFORMATION
  Report Type: Spontaneous
  Country: US (occurrence: None)
  Receive Date: 20140605
  Receipt Date: 20140605
  Transmission Date: 20141212
  Serious: Yes (Hospitalization)
  Sender: FDA-Public Use
  Company Number: None

PATIENT
  Age: 67 Year
  Sex: Female
  Weight: 53.4 kg

DRUGS (3)
  1. CARBOPLATIN [Suspect]
  2. TAXOL [Suspect]
  3. RIDAFOROLIMUS [Suspect]

REACTIONS (6)
  - Hydronephrosis [None]
  - Urethral obstruction [None]
  - Perinephric effusion [None]
  - Urinary retention [None]
  - Blood pressure increased [None]
  - Urinary tract obstruction [None]
